FAERS Safety Report 22705773 (Version 3)
Quarter: 2023Q4

REPORT INFORMATION
  Report Type: Report from Study
  Country: CN (occurrence: CN)
  Receive Date: 20230714
  Receipt Date: 20231222
  Transmission Date: 20240110
  Serious: Yes (Hospitalization, Other)
  Sender: FDA-Public Use
  Company Number: CN-Accord-365997

PATIENT
  Age: 47 Year
  Sex: Male
  Weight: 79 kg

DRUGS (7)
  1. FLUOROURACIL [Suspect]
     Active Substance: FLUOROURACIL
     Indication: HER2 positive colorectal cancer
     Dosage: SINGLE 5460 MG, IV BOLUS
     Route: 042
     Dates: start: 20230607, end: 20230609
  2. OXALIPLATIN [Suspect]
     Active Substance: OXALIPLATIN
     Indication: HER2 positive colorectal cancer
     Dosage: Q2 WEEK ON DAY 1, 15 AND 29 OF EACH 6 WEEK CYCLE
     Route: 042
     Dates: start: 20230507
  3. CETUXIMAB [Suspect]
     Active Substance: CETUXIMAB
     Indication: HER2 positive colorectal cancer
     Dosage: 700 MG SINGLE
     Route: 042
     Dates: start: 20230607, end: 20230607
  4. LEUCOVORIN [Suspect]
     Active Substance: LEUCOVORIN\LEUCOVORIN CALCIUM
     Indication: HER2 positive colorectal cancer
     Dosage: Q2WEEKS ON DAYS 1,15 AND 29 OF EA 6 WEEK CYCLE
     Route: 042
     Dates: start: 20230607
  5. BICYCLOL [Concomitant]
     Active Substance: BICYCLOL
     Dates: start: 20230607
  6. FLUOROURACIL [Suspect]
     Active Substance: FLUOROURACIL
     Indication: Colorectal cancer
     Dosage: OVER 46-48HOURS Q2WEEKS ON DAYS 1, 15 AND 29 OF EA 6 WEEK CYCLE
     Route: 042
  7. CETUXIMAB [Suspect]
     Active Substance: CETUXIMAB
     Indication: HER2 positive colorectal cancer
     Dosage: WEEKLY USE DURING 6 WEEK CYCLE
     Route: 042

REACTIONS (2)
  - Hepatic function abnormal [Recovered/Resolved]
  - Rectal haemorrhage [Recovered/Resolved]

NARRATIVE: CASE EVENT DATE: 20230611
